FAERS Safety Report 7582875-0 (Version None)
Quarter: 2011Q2

REPORT INFORMATION
  Report Type: 
  Country: None (occurrence: None)
  Receive Date: 20110630
  Receipt Date: 20110628
  Transmission Date: 20111010
  Serious: Yes (Other)
  Sender: FDA-Public Use
  Company Number: JP-PFIZER INC-2011144750

PATIENT
  Age: 78 Year
  Sex: Male

DRUGS (3)
  1. ARICEPT [Concomitant]
     Indication: DEMENTIA
     Dosage: 5 MG/DAY
     Route: 048
  2. LYRICA [Suspect]
     Indication: DIABETIC NEUROPATHY
     Dosage: 75 MG/DAY
     Route: 048
     Dates: start: 20110301, end: 20110330
  3. DOXAZOSIN MESYLATE [Concomitant]
     Dosage: 2 MG, A DAY
     Route: 048

REACTIONS (1)
  - DEMENTIA [None]
